FAERS Safety Report 15900122 (Version 1)
Quarter: 2019Q1

REPORT INFORMATION
  Report Type: Report from Study
  Country: DE (occurrence: DE)
  Receive Date: 20190201
  Receipt Date: 20190201
  Transmission Date: 20190417
  Serious: Yes (Hospitalization)
  Sender: FDA-Public Use
  Company Number: DE-PFIZER INC-2019045227

PATIENT
  Sex: Female

DRUGS (14)
  1. METHOTREXATE SODIUM. [Suspect]
     Active Substance: METHOTREXATE SODIUM
     Dosage: 15 MG, UNK
     Dates: start: 20170302
  2. METHOTREXATE SODIUM. [Suspect]
     Active Substance: METHOTREXATE SODIUM
     Dosage: 15 MG, UNK
     Dates: start: 20160928
  3. LEFLUNOMIDE. [Suspect]
     Active Substance: LEFLUNOMIDE
     Dosage: 20 MG, UNK
     Dates: start: 20150623
  4. LEFLUNOMIDE. [Suspect]
     Active Substance: LEFLUNOMIDE
     Dosage: UNK
     Dates: start: 20150921
  5. METHOTREXATE SODIUM. [Suspect]
     Active Substance: METHOTREXATE SODIUM
     Dosage: 10 MG, UNK
     Dates: start: 20180308
  6. NO SUBJECT DRUG [Suspect]
     Active Substance: UNSPECIFIED INGREDIENT
     Dosage: NO DOSE GIVEN
  7. METHOTREXATE SODIUM. [Suspect]
     Active Substance: METHOTREXATE SODIUM
     Dosage: 10 MG, UNK
     Dates: start: 20150623
  8. METHOTREXATE SODIUM. [Suspect]
     Active Substance: METHOTREXATE SODIUM
     Dosage: 15 MG, UNK
     Dates: start: 20160225
  9. BENEPALI [Suspect]
     Active Substance: ETANERCEPT
     Dosage: 50 MG, UNK
     Route: 065
     Dates: start: 201705
  10. METHOTREXATE SODIUM. [Suspect]
     Active Substance: METHOTREXATE SODIUM
     Dosage: 15 MG, UNK
     Dates: start: 20150921
  11. LEFLUNOMIDE. [Suspect]
     Active Substance: LEFLUNOMIDE
     Dosage: 20 MG, UNK
     Dates: start: 20150330
  12. METHOTREXATE SODIUM. [Suspect]
     Active Substance: METHOTREXATE SODIUM
     Dosage: 10 MG, UNK
     Dates: start: 20150330
  13. METHOTREXATE SODIUM. [Suspect]
     Active Substance: METHOTREXATE SODIUM
     Dosage: 10 MG, UNK
     Dates: start: 20171016
  14. BENEPALI [Suspect]
     Active Substance: ETANERCEPT
     Dosage: 50 MG, UNK
     Route: 065
     Dates: start: 20180308

REACTIONS (2)
  - Urinary tract infection [Unknown]
  - Pleural effusion [Unknown]

NARRATIVE: CASE EVENT DATE: 20170307
